FAERS Safety Report 8177562-4 (Version None)
Quarter: 2012Q1

REPORT INFORMATION
  Report Type: 
  Country: None (occurrence: None)
  Receive Date: 20120301
  Receipt Date: 20120221
  Transmission Date: 20120608
  Serious: Yes (Hospitalization)
  Sender: FDA-Public Use
  Company Number: MY-JNJFOC-20110712290

PATIENT
  Sex: Male
  Weight: 61 kg

DRUGS (5)
  1. ARTANE [Concomitant]
     Indication: SALIVARY HYPERSECRETION
     Dates: start: 20110307
  2. PALIPERIDONE PALMITATE [Suspect]
     Indication: SCHIZOPHRENIA
     Route: 030
     Dates: start: 20110704, end: 20110704
  3. PALIPERIDONE PALMITATE [Suspect]
     Route: 030
     Dates: start: 20101227
  4. LORAZEPAM [Concomitant]
     Indication: SALIVARY HYPERSECRETION
     Dates: start: 20110704, end: 20110708
  5. PALIPERIDONE PALMITATE [Suspect]
     Route: 030
     Dates: start: 20110602, end: 20110602

REACTIONS (1)
  - PSYCHOTIC DISORDER [None]
